FAERS Safety Report 4617604-3 (Version None)
Quarter: 2005Q1

REPORT INFORMATION
  Report Type: 
  Country: None (occurrence: None)
  Receive Date: 20050324
  Receipt Date: 20050218
  Transmission Date: 20050727
  Serious: Yes (Hospitalization)
  Sender: FDA-Public Use
  Company Number: JP-MERCK-0502USA02618

PATIENT
  Age: 52 Year
  Sex: Male

DRUGS (17)
  1. PEPCID RPD [Suspect]
     Indication: GASTRIC ULCER
     Route: 048
     Dates: start: 20050114, end: 20050131
  2. LIPITOR [Suspect]
     Indication: HYPERLIPIDAEMIA
     Route: 048
     Dates: start: 20050115, end: 20050127
  3. PANALDINE [Suspect]
     Indication: ACUTE MYOCARDIAL INFARCTION
     Route: 048
     Dates: start: 20050114, end: 20050201
  4. LIVALO [Suspect]
     Indication: HYPERLIPIDAEMIA
     Route: 048
     Dates: start: 20050128, end: 20050131
  5. ASPIRIN [Concomitant]
     Route: 048
     Dates: start: 20050114, end: 20050201
  6. RENIVACE [Concomitant]
     Route: 048
     Dates: start: 20050115, end: 20050201
  7. LASIX [Concomitant]
     Route: 048
     Dates: start: 20050118, end: 20050201
  8. PLETAL [Concomitant]
     Route: 048
     Dates: start: 20050114, end: 20050118
  9. HEPARIN SODIUM [Concomitant]
     Route: 042
     Dates: start: 20050114, end: 20050119
  10. NITOROL [Concomitant]
     Route: 042
     Dates: start: 20050114, end: 20050118
  11. [THERAPY UNSPECIFIED] [Concomitant]
     Route: 042
     Dates: start: 20050114, end: 20050114
  12. XYLOCAINE [Concomitant]
     Route: 042
     Dates: start: 20050114, end: 20050118
  13. ATROPINE SULFATE [Concomitant]
     Route: 042
     Dates: start: 20050114, end: 20050114
  14. MORPHINE HYDROCHLORIDE [Concomitant]
     Route: 042
     Dates: start: 20050114, end: 20050114
  15. UNASYN [Concomitant]
     Route: 042
     Dates: start: 20050114, end: 20050114
  16. SIGMART [Concomitant]
     Route: 042
     Dates: start: 20050115, end: 20050118
  17. CONIEL [Concomitant]
     Route: 048
     Dates: start: 20050118, end: 20050201

REACTIONS (9)
  - ALANINE AMINOTRANSFERASE INCREASED [None]
  - ASPARTATE AMINOTRANSFERASE INCREASED [None]
  - BLOOD ALKALINE PHOSPHATASE INCREASED [None]
  - BLOOD BILIRUBIN INCREASED [None]
  - BRADYCARDIA [None]
  - CARDIAC FAILURE [None]
  - EOSINOPHIL COUNT INCREASED [None]
  - RASH PRURITIC [None]
  - VENTRICULAR ARRHYTHMIA [None]
